FAERS Safety Report 14207813 (Version 2)
Quarter: 2017Q4

REPORT INFORMATION
  Report Type: Spontaneous
  Country: US (occurrence: US)
  Receive Date: 20171121
  Receipt Date: 20171129
  Transmission Date: 20180321
  Serious: Yes (Hospitalization)
  Sender: FDA-Public Use
  Company Number: US-JNJFOC-20171110720

PATIENT
  Sex: Male
  Weight: 131 kg

DRUGS (15)
  1. ALLOPURINOL. [Concomitant]
     Active Substance: ALLOPURINOL
  2. RENA-VITE [Concomitant]
     Active Substance: ASCORBIC ACID\BIOTIN\CALCIUM PANTOTHENATE\CYANOCOBALAMIN\FOLIC ACID\NIACINAMIDE\PYRIDOXINE HYDROCHLORIDE\RIBOFLAVIN\THIAMINE MONONITRATE
  3. COMPAZINE [Concomitant]
     Active Substance: PROCHLORPERAZINE MALEATE
  4. FAMOTIDINE. [Concomitant]
     Active Substance: FAMOTIDINE
  5. PREDNISONE. [Concomitant]
     Active Substance: PREDNISONE
  6. EPOGEN [Concomitant]
     Active Substance: ERYTHROPOIETIN
     Indication: END STAGE RENAL DISEASE
  7. IMBRUVICA [Suspect]
     Active Substance: IBRUTINIB
     Indication: CHRONIC LYMPHOCYTIC LEUKAEMIA
     Route: 048
  8. METOPROLOL. [Concomitant]
     Active Substance: METOPROLOL
  9. DOXYCYCLINE. [Concomitant]
     Active Substance: DOXYCYCLINE
  10. WARFARIN [Concomitant]
     Active Substance: WARFARIN
  11. AZELASTINE. [Concomitant]
     Active Substance: AZELASTINE HYDROCHLORIDE
  12. RENVELA [Concomitant]
     Active Substance: SEVELAMER CARBONATE
  13. DESLORATADINE. [Concomitant]
     Active Substance: DESLORATADINE
  14. CALCITRIOL. [Concomitant]
     Active Substance: CALCITRIOL
  15. ALBUTEROL. [Concomitant]
     Active Substance: ALBUTEROL

REACTIONS (3)
  - Haemoglobin increased [Not Recovered/Not Resolved]
  - Renal neoplasm [Not Recovered/Not Resolved]
  - Adverse drug reaction [Unknown]

NARRATIVE: CASE EVENT DATE: 2015
